FAERS Safety Report 5085742-X (Version None)
Quarter: 2006Q3

REPORT INFORMATION
  Report Type: 
  Country: None (occurrence: None)
  Receive Date: 20060822
  Receipt Date: 20021024
  Transmission Date: 20061208
  Serious: Yes (Death)
  Sender: FDA-Public Use
  Company Number: US-BRISTOL-MYERS SQUIBB COMPANY-13033170

PATIENT
  Sex: Female

DRUGS (1)
  1. ZERIT [Suspect]

REACTIONS (1)
  - LACTIC ACIDOSIS [None]
